FAERS Safety Report 16930179 (Version 1)
Quarter: 2019Q4

REPORT INFORMATION
  Report Type: Spontaneous
  Country: PK (occurrence: PK)
  Receive Date: 20191017
  Receipt Date: 20191017
  Transmission Date: 20200122
  Serious: Yes (Hospitalization)
  Sender: FDA-Public Use
  Company Number: US-SLATE RUN PHARMACEUTICALS-SLTR-AE-19-106

PATIENT
  Age: 10 Year
  Sex: Male

DRUGS (4)
  1. 70436-029-80 VORICONAZOLE FOR INJECTION DRY VIAL 200 MG [Suspect]
     Active Substance: VORICONAZOLE
     Indication: BRONCHOPULMONARY ASPERGILLOSIS
     Route: 042
  2. 70436-029-80 VORICONAZOLE FOR INJECTION DRY VIAL 200 MG [Suspect]
     Active Substance: VORICONAZOLE
     Indication: BRONCHOPULMONARY ASPERGILLOSIS
     Dosage: VERY LOW-DOSE
     Route: 042
  3. 70436-029-80 VORICONAZOLE FOR INJECTION DRY VIAL 200 MG [Suspect]
     Active Substance: VORICONAZOLE
     Indication: BRONCHOPULMONARY ASPERGILLOSIS
     Dosage: DOSE NOT SPECIFIED
     Route: 048
  4. 70436-029-80 VORICONAZOLE FOR INJECTION DRY VIAL 200 MG [Suspect]
     Active Substance: VORICONAZOLE
     Indication: BRONCHOPULMONARY ASPERGILLOSIS
     Dosage: LOW-DOSE
     Route: 042

REACTIONS (3)
  - Hepatic enzyme increased [Recovered/Resolved]
  - Gastrointestinal anastomotic leak [Recovered/Resolved]
  - Skin abrasion [Recovered/Resolved]
